FAERS Safety Report 7353045-6 (Version None)
Quarter: 2011Q1

REPORT INFORMATION
  Report Type: 
  Country: None (occurrence: None)
  Receive Date: 20110315
  Receipt Date: 20110308
  Transmission Date: 20110831
  Serious: Yes (Disabling)
  Sender: FDA-Public Use
  Company Number: B0694031A

PATIENT
  Sex: Female

DRUGS (4)
  1. PAXIL [Suspect]
     Indication: DEPRESSION
     Dosage: 40MG PER DAY
     Route: 048
     Dates: start: 20100801, end: 20100927
  2. DIAZEPAM [Concomitant]
     Indication: ANXIETY
     Dosage: 4MG PER DAY
     Route: 048
     Dates: start: 20100814
  3. CHLORDIAZEPOXIDE [Concomitant]
     Indication: INSOMNIA
     Dosage: 10MG PER DAY
     Route: 048
     Dates: start: 20100814
  4. DEPAS [Concomitant]
     Indication: ANXIETY
     Dosage: .5MG PER DAY
     Route: 048
     Dates: start: 20100814

REACTIONS (6)
  - DIZZINESS [None]
  - PARKINSONISM [None]
  - DECUBITUS ULCER [None]
  - GAIT DISTURBANCE [None]
  - TREMOR [None]
  - MUSCULAR WEAKNESS [None]
